FAERS Safety Report 16646072 (Version 1)
Quarter: 2019Q3

REPORT INFORMATION
  Report Type: Report from Study
  Country: GB (occurrence: GB)
  Receive Date: 20190730
  Receipt Date: 20190730
  Transmission Date: 20191004
  Serious: Yes (Hospitalization, Other)
  Sender: FDA-Public Use
  Company Number: GB-ACCORD-149456

PATIENT
  Age: 70 Year
  Sex: Male

DRUGS (2)
  1. CLOFARABINE. [Suspect]
     Active Substance: CLOFARABINE
     Indication: CHRONIC MYELOID LEUKAEMIA
  2. CYTARABINE/CYTARABINE HYDROCHLORIDE/CYTARABINE OCFOSFATE [Suspect]
     Active Substance: CYTARABINE
     Indication: CHRONIC MYELOID LEUKAEMIA

REACTIONS (4)
  - Toxic epidermal necrolysis [Unknown]
  - Off label use [Unknown]
  - Skin toxicity [Unknown]
  - Capillary leak syndrome [Unknown]
